FAERS Safety Report 11665674 (Version 2)
Quarter: 2015Q4

REPORT INFORMATION
  Report Type: Report from Study
  Country: US (occurrence: US)
  Receive Date: 20151027
  Receipt Date: 20151104
  Transmission Date: 20160304
  Serious: No
  Sender: FDA-Public Use
  Company Number: US-AMGEN-USASP2015107080

PATIENT
  Age: 56 Year
  Sex: Male

DRUGS (1)
  1. ENBREL [Suspect]
     Active Substance: ETANERCEPT
     Indication: PSORIASIS
     Dosage: QW
     Route: 065
     Dates: start: 2015

REACTIONS (3)
  - Device malfunction [Unknown]
  - Inappropriate schedule of drug administration [Unknown]
  - No therapeutic response [Unknown]

NARRATIVE: CASE EVENT DATE: 2015
